FAERS Safety Report 15011169 (Version 1)
Quarter: 2018Q2

REPORT INFORMATION
  Report Type: Spontaneous
  Country: NL (occurrence: NL)
  Receive Date: 20180614
  Receipt Date: 20180614
  Transmission Date: 20180711
  Serious: Yes (Other)
  Sender: FDA-Public Use
  Company Number: NL-CONCORDIA PHARMACEUTICALS INC.-E2B_00012477

PATIENT
  Age: 91 Year
  Sex: Male
  Weight: 78 kg

DRUGS (5)
  1. ELIQUIS TABLET 5MG [Concomitant]
     Dosage: 2DD1
  2. AMLODIPINE [Concomitant]
     Active Substance: AMLODIPINE BESYLATE
     Dosage: 1DD1
  3. BETAHISTINE 8MG [Concomitant]
     Dosage: 2DD1
  4. PREDNISOLONE. [Suspect]
     Active Substance: PREDNISOLONE
     Indication: TEMPORAL ARTERITIS
     Dosage: 30MG
     Dates: start: 20180118
  5. COLECALCIFEROL 800IE [Concomitant]
     Dosage: 1DD1

REACTIONS (1)
  - Diverticulitis [Recovered/Resolved]

NARRATIVE: CASE EVENT DATE: 20180125
